FAERS Safety Report 24814638 (Version 4)
Quarter: 2025Q4

REPORT INFORMATION
  Report Type: Report from Study
  Country: CA (occurrence: CA)
  Receive Date: 20250107
  Receipt Date: 20251024
  Transmission Date: 20260117
  Serious: Yes (Other)
  Sender: JOHNSON AND JOHNSON
  Company Number: CA-JNJFOC-20241289997

PATIENT
  Age: 50 Year
  Sex: Female

DRUGS (1)
  1. SIMPONI [Suspect]
     Active Substance: GOLIMUMAB
     Indication: Ankylosing spondylitis
     Route: 058
     Dates: start: 20241024, end: 20250501

REACTIONS (3)
  - Drug-induced liver injury [Recovering/Resolving]
  - Hepatitis A [Unknown]
  - Off label use [Unknown]

NARRATIVE: CASE EVENT DATE: 20241024
